FAERS Safety Report 10025486 (Version 1)
Quarter: 2014Q1

REPORT INFORMATION
  Report Type: Report from Study
  Country: NL (occurrence: NL)
  Receive Date: 20140320
  Receipt Date: 20140320
  Transmission Date: 20141002
  Serious: Yes (Death)
  Sender: FDA-Public Use
  Company Number: PHHY2014NL033417

PATIENT
  Sex: Male

DRUGS (4)
  1. ZOMETA [Suspect]
     Indication: PROSTATE CANCER
     Dosage: 4 MG/100 ML,ONE PER 4 WEEKS
     Route: 042
  2. ZOMETA [Suspect]
     Dosage: 4 MG/100ML,ONE PER 4 WEEKS
     Route: 042
     Dates: start: 20130902
  3. ZOMETA [Suspect]
     Dosage: 4 MG/100ML, ONE PER 4 WEEKS
     Route: 042
     Dates: start: 20131028
  4. ZOMETA [Suspect]
     Dosage: 4 MG/100ML,ONE PER 4 WEEKS
     Route: 042
     Dates: start: 20131125

REACTIONS (1)
  - Death [Fatal]
